FAERS Safety Report 11351964 (Version 2)
Quarter: 2015Q4

REPORT INFORMATION
  Report Type: Spontaneous
  Country: US (occurrence: US)
  Receive Date: 20150807
  Receipt Date: 20151022
  Transmission Date: 20160304
  Serious: No
  Sender: FDA-Public Use
  Company Number: US-JNJFOC-20140926944

PATIENT
  Age: 74 Year
  Sex: Male
  Weight: 78.02 kg

DRUGS (1)
  1. PEPCID COMPLETE [Suspect]
     Active Substance: CALCIUM CARBONATE\FAMOTIDINE\MAGNESIUM HYDROXIDE
     Indication: GASTROOESOPHAGEAL REFLUX DISEASE
     Route: 048
     Dates: start: 20140925, end: 20140926

REACTIONS (4)
  - Product label issue [Unknown]
  - Product formulation issue [Unknown]
  - Product use issue [Unknown]
  - Drug ineffective for unapproved indication [Unknown]
